FAERS Safety Report 8446247-9 (Version None)
Quarter: 2012Q2

REPORT INFORMATION
  Report Type: 
  Country: None (occurrence: None)
  Receive Date: 20120618
  Receipt Date: 20120611
  Transmission Date: 20120825
  Serious: Yes (Disabling, Other)
  Sender: FDA-Public Use
  Company Number: BR-ABBOTT-12P-020-0945498-00

PATIENT
  Sex: Male

DRUGS (2)
  1. VALPROATE SODIUM [Suspect]
     Indication: EPILEPSY
     Dosage: GASTRO-RESISTANT TABLET;ORAL;TWICE A DAY
     Route: 048
     Dates: start: 19950101
  2. CLOBAZAM [Suspect]
     Indication: ANXIETY
     Route: 048
     Dates: start: 20090101

REACTIONS (10)
  - FEELING ABNORMAL [None]
  - DROOLING [None]
  - AGITATION [None]
  - DAYDREAMING [None]
  - ATROPHY [None]
  - DRUG INEFFECTIVE [None]
  - INTERMITTENT EXPLOSIVE DISORDER [None]
  - ANXIETY [None]
  - EPILEPSY [None]
  - NERVOUSNESS [None]
